FAERS Safety Report 19628593 (Version 1)
Quarter: 2021Q3

REPORT INFORMATION
  Report Type: Spontaneous
  Country: US (occurrence: US)
  Receive Date: 20210729
  Receipt Date: 20210729
  Transmission Date: 20211014
  Serious: Yes (Life-Threatening, Other)
  Sender: FDA-Public Use
  Company Number: US-ALNYLAM PHARMACEUTICALS, INC.-ALN-2021-001808

PATIENT

DRUGS (1)
  1. OXLUMO [Suspect]
     Active Substance: LUMASIRAN
     Indication: PRIMARY HYPEROXALURIA
     Dosage: UNK
     Route: 058
     Dates: start: 202104

REACTIONS (2)
  - Suicidal ideation [Unknown]
  - Suicide attempt [Unknown]
